FAERS Safety Report 6723787-1 (Version None)
Quarter: 2010Q2

REPORT INFORMATION
  Report Type: 
  Country: None (occurrence: None)
  Receive Date: 20100513
  Receipt Date: 20100430
  Transmission Date: 20101027
  Serious: Yes (Hospitalization, Other)
  Sender: FDA-Public Use
  Company Number: NL-MEDIMMUNE-MEDI-0010386

PATIENT
  Sex: Male
  Weight: 5.28 kg

DRUGS (2)
  1. SYNAGIS [Suspect]
     Route: 030
     Dates: start: 20091006, end: 20100309
  2. SYNAGIS [Suspect]
     Route: 030
     Dates: start: 20100414, end: 20100414

REACTIONS (5)
  - CARDIAC DISORDER [None]
  - DYSPNOEA [None]
  - GROWTH RETARDATION [None]
  - URINARY TRACT INFECTION [None]
  - VOMITING [None]
